FAERS Safety Report 24718990 (Version 1)
Quarter: 2024Q4

REPORT INFORMATION
  Report Type: Spontaneous
  Country: US (occurrence: US)
  Receive Date: 20241210
  Receipt Date: 20241210
  Transmission Date: 20250115
  Serious: No
  Sender: LEXICON PHARMACEUTICALS
  Company Number: US-LEX-000596

PATIENT
  Age: 77 Year
  Sex: Female

DRUGS (1)
  1. INPEFA [Suspect]
     Active Substance: SOTAGLIFLOZIN
     Indication: Product used for unknown indication
     Route: 048

REACTIONS (2)
  - Headache [Unknown]
  - Dizziness [Unknown]
